FAERS Safety Report 21889380 (Version 3)
Quarter: 2023Q2

REPORT INFORMATION
  Report Type: Spontaneous
  Country: US (occurrence: US)
  Receive Date: 20230120
  Receipt Date: 20230419
  Transmission Date: 20230722
  Serious: Yes (Death, Other)
  Sender: FDA-Public Use
  Company Number: US-BRISTOL-MYERS SQUIBB COMPANY-2023-008596

PATIENT
  Age: 81 Year
  Sex: Female

DRUGS (2)
  1. ORENCIA [Suspect]
     Active Substance: ABATACEPT
     Indication: Product used for unknown indication
     Dosage: DOSE : 250MG;     FREQ : UNAVAILABLE
  2. ORENCIA [Suspect]
     Active Substance: ABATACEPT

REACTIONS (1)
  - Death [Fatal]
